APPROVED DRUG PRODUCT: ESTROPIPATE
Active Ingredient: ESTROPIPATE
Strength: 1.5MG
Dosage Form/Route: TABLET;ORAL
Application: A040359 | Product #002
Applicant: PHARMOBEDIENT CONSULTING LLC
Approved: Aug 26, 1999 | RLD: No | RS: No | Type: DISCN